FAERS Safety Report 5457155-X (Version None)
Quarter: 2007Q3

REPORT INFORMATION
  Report Type: 
  Country: None (occurrence: None)
  Receive Date: 20070813
  Receipt Date: 20061219
  Transmission Date: 20080115
  Serious: No
  Sender: FDA-Public Use
  Company Number: 20063329

PATIENT
  Sex: Male

DRUGS (1)
  1. LIORESAL [Suspect]
     Indication: MUSCLE SPASTICITY
     Dosage: MCG, DAILY, INTRATHECAL
     Route: 037

REACTIONS (5)
  - ASTHENIA [None]
  - CONSTIPATION [None]
  - DYSPEPSIA [None]
  - HYPOTONIA [None]
  - VOMITING [None]
